FAERS Safety Report 6700502-9 (Version None)
Quarter: 2010Q2

REPORT INFORMATION
  Report Type: 
  Country: None (occurrence: None)
  Receive Date: 20100428
  Receipt Date: 20100423
  Transmission Date: 20101027
  Serious: Yes (Hospitalization)
  Sender: FDA-Public Use
  Company Number: A0801982A

PATIENT
  Sex: Female
  Weight: 54.5 kg

DRUGS (1)
  1. AVANDIA [Suspect]
     Indication: TYPE 2 DIABETES MELLITUS
     Dosage: 4MG TWICE PER DAY
     Route: 048
     Dates: end: 20060101

REACTIONS (18)
  - ANGINA PECTORIS [None]
  - ARRHYTHMIA [None]
  - CARDIAC FAILURE CONGESTIVE [None]
  - CATARACT [None]
  - CEREBROVASCULAR ACCIDENT [None]
  - CONDITION AGGRAVATED [None]
  - CORONARY ARTERY DISEASE [None]
  - ECONOMIC PROBLEM [None]
  - FACIAL PALSY [None]
  - HYPERTENSION [None]
  - MULTIPLE INJURIES [None]
  - MUSCULAR WEAKNESS [None]
  - PAIN [None]
  - PERIPHERAL VASCULAR DISORDER [None]
  - SURGERY [None]
  - TRANSIENT ISCHAEMIC ATTACK [None]
  - UNEVALUABLE EVENT [None]
  - VISUAL IMPAIRMENT [None]
